FAERS Safety Report 8093285-4 (Version None)
Quarter: 2012Q1

REPORT INFORMATION
  Report Type: 
  Country: None (occurrence: None)
  Receive Date: 20120128
  Receipt Date: 20111007
  Transmission Date: 20120608
  Serious: No
  Sender: FDA-Public Use
  Company Number: US-ABBOTT-11P-163-0837132-00

PATIENT
  Sex: Female

DRUGS (7)
  1. HUMIRA [Suspect]
     Dates: start: 20110601
  2. PREDNISONE TAB [Concomitant]
     Indication: PRODUCT USED FOR UNKNOWN INDICATION
  3. AZATHIOPRINE [Concomitant]
     Indication: PRODUCT USED FOR UNKNOWN INDICATION
     Dosage: 2.5 DAILY
  4. FAMOTIDINE [Concomitant]
     Indication: ULCER
  5. PENTASA [Concomitant]
     Indication: PRODUCT USED FOR UNKNOWN INDICATION
  6. HUMIRA [Suspect]
     Indication: CROHN'S DISEASE
     Dosage: (160 MG, LOADING DOSE)
     Route: 058
     Dates: start: 20110621
  7. BIRTH CONTROL [Concomitant]
     Indication: PRODUCT USED FOR UNKNOWN INDICATION

REACTIONS (14)
  - HYPERHIDROSIS [None]
  - DIARRHOEA [None]
  - ABDOMINAL DISTENSION [None]
  - MUSCULAR WEAKNESS [None]
  - JOINT SWELLING [None]
  - ARTHRALGIA [None]
  - INJECTION SITE HAEMATOMA [None]
  - NAUSEA [None]
  - HYPOAESTHESIA [None]
  - DECREASED APPETITE [None]
  - INJECTION SITE SWELLING [None]
  - GASTROINTESTINAL MOTILITY DISORDER [None]
  - INJECTION SITE PAIN [None]
  - BURNING SENSATION [None]
